FAERS Safety Report 20594091 (Version 2)
Quarter: 2022Q1

REPORT INFORMATION
  Report Type: Other
  Country: US (occurrence: None)
  Receive Date: 20220315
  Receipt Date: 20220319
  Transmission Date: 20220423
  Serious: Yes (Death)
  Sender: FDA-Public Use
  Company Number: US-ROCHE-3049911

PATIENT
  Age: 75 Year
  Sex: Male

DRUGS (19)
  1. ESBRIET [Suspect]
     Active Substance: PIRFENIDONE
     Indication: Interstitial lung disease
     Dosage: 1 TABLET BY MOUTH 3 TIMES A DAY FOR 1 WEEKS THEN TAKE 2 TABLETS BY MOUTH 3 TIMES DAY FOR 1 WEEKS THE
     Route: 048
  2. TYLENOL [Concomitant]
     Active Substance: ACETAMINOPHEN
     Route: 048
     Dates: start: 20210413
  3. VENTOLIN [Concomitant]
     Active Substance: ALBUTEROL SULFATE
     Dosage: 90 MCG, INHALATION AEROSOL, 2 PUFF, INHALED
     Route: 065
     Dates: start: 20201209
  4. ALLOPURINOL [Concomitant]
     Active Substance: ALLOPURINOL
     Dosage: 90 TAB, REFILLS 3, TAKE 1 TAB B Y MOUTH DAILY
     Route: 048
  5. AMOXICILLIN [Concomitant]
     Active Substance: AMOXICILLIN
     Dosage: ONE HOUR BEFORE DENTAL
     Route: 048
     Dates: start: 20200529
  6. ELIQUIS [Concomitant]
     Active Substance: APIXABAN
     Route: 048
     Dates: start: 20210729
  7. ASPIRIN [Concomitant]
     Active Substance: ASPIRIN
     Dates: start: 20200130
  8. BUMEX [Concomitant]
     Active Substance: BUMETANIDE
     Dosage: INCREASE 2 TABS IN THE MORNING AND 1 TAB IN THE EVENING
     Route: 048
     Dates: start: 20210212
  9. VITAMIN B12 [Concomitant]
     Active Substance: CYANOCOBALAMIN
     Dosage: 1000 MCG, EVERY OTHER DAY
     Route: 065
     Dates: start: 20191009
  10. DICLOFENAC [Concomitant]
     Active Substance: DICLOFENAC
     Route: 061
     Dates: start: 20200729
  11. TRULICITY [Concomitant]
     Active Substance: DULAGLUTIDE
     Dosage: Q7D
     Route: 058
     Dates: start: 20211116
  12. GABAPENTIN [Concomitant]
     Active Substance: GABAPENTIN
     Dosage: 720 CAPSULE, TAKE 3 CAPSULE BY MOUTH EVERY MORNING AND 2 CAPSULES AT NOON AND 3 CAPSULE IN EVENING
     Route: 048
     Dates: start: 20210826
  13. INFLUENZA VIRUS VACCINE [Concomitant]
     Active Substance: INFLUENZA VIRUS VACCINE
     Dosage: FLUZONE HIGH DOSE QUADRIVALENT, 2020-2021, INTRAMUSCULAR VACCINE
     Route: 030
     Dates: start: 20210526
  14. LANTUS [Concomitant]
     Active Substance: INSULIN GLARGINE
     Dosage: 100 UNITS/ ML
     Route: 058
     Dates: start: 20210713
  15. ISOSORBIDE MONONITRATE [Concomitant]
     Active Substance: ISOSORBIDE MONONITRATE
     Route: 048
     Dates: start: 20210713
  16. LOSARTAN [Concomitant]
     Active Substance: LOSARTAN
     Route: 048
     Dates: start: 20210729
  17. METFORMIN [Concomitant]
     Active Substance: METFORMIN HYDROCHLORIDE
     Route: 048
     Dates: start: 20211116
  18. METOLAZONE [Concomitant]
     Active Substance: METOLAZONE
     Dosage: TAKE 30 MINUTES PRIOR TO MORNING DOSE OF BUMEX
     Route: 048
  19. PROTONIX [Concomitant]
     Active Substance: PANTOPRAZOLE SODIUM
     Route: 048
     Dates: start: 20211111

REACTIONS (1)
  - Death [Fatal]

NARRATIVE: CASE EVENT DATE: 20220309
